FAERS Safety Report 11259115 (Version 1)
Quarter: 2015Q3

REPORT INFORMATION
  Report Type: Spontaneous
  Country: SE (occurrence: SE)
  Receive Date: 20150710
  Receipt Date: 20150710
  Transmission Date: 20151125
  Serious: Yes (Hospitalization)
  Sender: FDA-Public Use
  Company Number: SE-PFIZER INC-2015223803

PATIENT
  Age: 22 Year
  Sex: Female

DRUGS (6)
  1. NEOVLETTA [Concomitant]
     Active Substance: ETHINYL ESTRADIOL\LEVONORGESTREL
  2. CYMBALTA [Concomitant]
     Active Substance: DULOXETINE HYDROCHLORIDE
     Dosage: 60 MG, UNK
  3. SALAZOPYRIN [Suspect]
     Active Substance: SULFASALAZINE
     Indication: PROCTITIS ULCERATIVE
     Dosage: 500 MG, UNK
     Dates: start: 2013
  4. PREDNISOLONE. [Concomitant]
     Active Substance: PREDNISOLONE
  5. BEHEPAN [Concomitant]
     Active Substance: HYDROXOCOBALAMIN
     Dosage: 1 MG, UNK
  6. SEROQUEL [Concomitant]
     Active Substance: QUETIAPINE FUMARATE

REACTIONS (1)
  - Raynaud^s phenomenon [Recovered/Resolved]

NARRATIVE: CASE EVENT DATE: 201304
